FAERS Safety Report 9154352 (Version 1)
Quarter: 2013Q1

REPORT INFORMATION
  Report Type: Spontaneous
  Country: JP (occurrence: JP)
  Receive Date: 20130311
  Receipt Date: 20130311
  Transmission Date: 20140127
  Serious: Yes (Hospitalization)
  Sender: FDA-Public Use
  Company Number: JP-ELI_LILLY_AND_COMPANY-JP201301009157

PATIENT
  Age: 78 Year
  Sex: 0
  Weight: 59 kg

DRUGS (4)
  1. ALIMTA [Suspect]
     Indication: LUNG NEOPLASM MALIGNANT
     Dosage: 500 MG, UNK
     Route: 042
     Dates: start: 201011, end: 201106
  2. ALIMTA [Suspect]
     Dosage: UNK
     Route: 042
     Dates: start: 201111
  3. FOLIC ACID [Concomitant]
     Dosage: 0.5 MG, UNK
     Route: 048
  4. VITAMIN B12 [Concomitant]
     Dosage: 1 MG, UNK
     Route: 030

REACTIONS (2)
  - Cholecystitis [Recovered/Resolved]
  - Bile duct stone [Recovered/Resolved]
